FAERS Safety Report 11323674 (Version 1)
Quarter: 2015Q3

REPORT INFORMATION
  Report Type: Spontaneous
  Country: US (occurrence: None)
  Receive Date: 20150729
  Receipt Date: 20150729
  Transmission Date: 20151125
  Serious: No
  Sender: FDA-Public Use
  Company Number: None

PATIENT
  Age: 35 Year
  Sex: Male

DRUGS (6)
  1. NITAZOXANIDE [Suspect]
     Active Substance: NITAZOXANIDE
     Indication: INFECTION
     Route: 048
     Dates: start: 20150315
  2. FLUCONAZOLE. [Concomitant]
     Active Substance: FLUCONAZOLE
  3. EFAVIRENZ [Concomitant]
     Active Substance: EFAVIRENZ
  4. EMTRICITABINE [Concomitant]
     Active Substance: EMTRICITABINE
  5. TENOFOVIR [Concomitant]
     Active Substance: TENOFOVIR
  6. LOPERAMIDE [Concomitant]
     Active Substance: LOPERAMIDE

REACTIONS (3)
  - Diarrhoea [None]
  - Weight decreased [None]
  - Nausea [None]

NARRATIVE: CASE EVENT DATE: 20150315
